FAERS Safety Report 7797811-1 (Version None)
Quarter: 2011Q4

REPORT INFORMATION
  Report Type: 
  Country: None (occurrence: None)
  Receive Date: 20111005
  Receipt Date: 20110929
  Transmission Date: 20120403
  Serious: Yes (Other)
  Sender: FDA-Public Use
  Company Number: US-PFIZER INC-2011234174

PATIENT
  Sex: Female
  Weight: 80.272 kg

DRUGS (3)
  1. NEXIUM [Suspect]
     Indication: GASTROOESOPHAGEAL REFLUX DISEASE
     Dosage: 40 MG, ALTERNATE DAY
  2. BEXTRA [Suspect]
     Indication: BACK DISORDER
     Dosage: UNK
     Route: 048
     Dates: start: 19970101
  3. LISINOPRIL [Concomitant]
     Indication: HYPERTENSION
     Dosage: 20 MG, UNK

REACTIONS (7)
  - GASTROOESOPHAGEAL REFLUX DISEASE [None]
  - HERPES ZOSTER [None]
  - HYPOTENSION [None]
  - BONE PAIN [None]
  - UPPER LIMB FRACTURE [None]
  - ANXIETY [None]
  - FATIGUE [None]
